FAERS Safety Report 6303824-9 (Version None)
Quarter: 2009Q4

REPORT INFORMATION
  Report Type: 
  Country: None (occurrence: None)
  Receive Date: 20090805
  Receipt Date: 20090723
  Transmission Date: 20100525
  Serious: Yes (Hospitalization, Other)
  Sender: FDA-Public Use
  Company Number: 2009S1005929

PATIENT
  Sex: Female

DRUGS (2)
  1. PHOSPHOSODA FLAVOR NOT SPECIFIED [Suspect]
     Indication: COLONOSCOPY
     Dosage: 90 ML; TOTAL; PO
     Route: 048
     Dates: start: 20050809, end: 20050809
  2. EXCEDRIN (MIGRAINE) [Suspect]

REACTIONS (3)
  - ANAEMIA [None]
  - DIZZINESS [None]
  - RENAL FAILURE [None]
